FAERS Safety Report 5836078-8 (Version None)
Quarter: 2008Q3

REPORT INFORMATION
  Report Type: 
  Country: None (occurrence: None)
  Receive Date: 20080805
  Receipt Date: 20080722
  Transmission Date: 20090109
  Serious: No
  Sender: FDA-Public Use
  Company Number: 003045

PATIENT
  Age: 84 Year
  Sex: Male

DRUGS (5)
  1. PLETAL [Suspect]
     Indication: CEREBRAL INFARCTION
     Dosage: ORAL
     Route: 048
  2. DOPS (DROXIDOPA) [Concomitant]
  3. ASPIRIN [Concomitant]
  4. PURSENNID (SENNOSIDE) TABLET [Concomitant]
  5. TANATRIL (IMIDAPRIL HYDROCHLORIDE) TABLET [Concomitant]

REACTIONS (1)
  - BLOOD CREATINE PHOSPHOKINASE INCREASED [None]
